FAERS Safety Report 6414546-8 (Version None)
Quarter: 2009Q4

REPORT INFORMATION
  Report Type: 
  Country: None (occurrence: None)
  Receive Date: 20091021
  Receipt Date: 20091012
  Transmission Date: 20100525
  Serious: Yes (Hospitalization)
  Sender: FDA-Public Use
  Company Number: GXKR2009CA11221

PATIENT
  Age: 72 Year
  Sex: Male

DRUGS (3)
  1. CISPLATIN [Suspect]
     Indication: SMALL CELL CARCINOMA
     Dosage: 80 MG/M2, ON DAY 1, INTRAVENOUS
     Route: 042
  2. ETOPOSIDE [Suspect]
     Indication: SMALL CELL CARCINOMA
     Dosage: 100 MG/M2, DAYS 1-3, INTRAVENOUS
     Route: 042
  3. CARBOPLATIN [Concomitant]
     Indication: SMALL CELL CARCINOMA
     Dosage: AREA UNDER THE CURVE: 6, INTRAVENOUS
     Route: 042

REACTIONS (19)
  - ABDOMINAL CAVITY DRAINAGE [None]
  - ABDOMINAL PAIN [None]
  - ABSCESS [None]
  - BACTEROIDES INFECTION [None]
  - DYSPNOEA [None]
  - ENTEROCOCCAL INFECTION [None]
  - FATIGUE [None]
  - GENERALISED OEDEMA [None]
  - HAEMOGLOBIN DECREASED [None]
  - HYPOTENSION [None]
  - INTESTINAL PERFORATION [None]
  - KLEBSIELLA INFECTION [None]
  - LEUKOCYTOSIS [None]
  - PYREXIA [None]
  - RENAL FAILURE ACUTE [None]
  - SEPSIS [None]
  - SOMNOLENCE [None]
  - STAPHYLOCOCCAL INFECTION [None]
  - TACHYCARDIA [None]
